FAERS Safety Report 17067911 (Version 2)
Quarter: 2020Q1

REPORT INFORMATION
  Report Type: Spontaneous
  Country: US (occurrence: US)
  Receive Date: 20191122
  Receipt Date: 20200129
  Transmission Date: 20200409
  Serious: No
  Sender: FDA-Public Use
  Company Number: US-BIOGEN-2017BI00434593

PATIENT
  Sex: Female

DRUGS (4)
  1. ALEVE [Concomitant]
     Active Substance: NAPROXEN SODIUM
     Route: 065
  2. PLEGRIDY [Suspect]
     Active Substance: PEGINTERFERON BETA-1A
     Indication: MULTIPLE SCLEROSIS
     Route: 058
  3. VITAMIN D3 [Concomitant]
     Active Substance: CHOLECALCIFEROL
     Route: 065
  4. TRETINOIN. [Concomitant]
     Active Substance: TRETINOIN
     Route: 065

REACTIONS (3)
  - Influenza like illness [Not Recovered/Not Resolved]
  - Drug ineffective [Unknown]
  - White blood cell count decreased [Not Recovered/Not Resolved]
